FAERS Safety Report 7250276-0 (Version None)
Quarter: 2011Q1

REPORT INFORMATION
  Report Type: 
  Country: None (occurrence: None)
  Receive Date: 20110119
  Receipt Date: 20110104
  Transmission Date: 20110831
  Serious: Yes (Hospitalization)
  Sender: FDA-Public Use
  Company Number: UTC-003981

PATIENT
  Age: 62 Year
  Sex: Female
  Weight: 80 kg

DRUGS (6)
  1. DILTIAZEM [Concomitant]
  2. REMODULIN [Suspect]
     Indication: PULMONARY ARTERIAL HYPERTENSION
     Dosage: 90 UG/KG (0.0625 UG/KG, 1 IN1 MIN) SUBCUTANEOUS
     Route: 058
     Dates: start: 20051027, end: 20110104
  3. DIURETICS [Concomitant]
  4. ADVAIR HFA [Concomitant]
  5. REVATIO [Concomitant]
  6. PREDNISONE [Concomitant]

REACTIONS (1)
  - INFECTION [None]
